FAERS Safety Report 4692799-4 (Version None)
Quarter: 2005Q2

REPORT INFORMATION
  Report Type: 
  Country: None (occurrence: None)
  Receive Date: 20050617
  Receipt Date: 20050526
  Transmission Date: 20051028
  Serious: Yes (Other)
  Sender: FDA-Public Use
  Company Number: PHEH2005US05966

PATIENT
  Age: 58 Year
  Sex: Male

DRUGS (16)
  1. ZOMETA [Suspect]
     Indication: MULTIPLE MYELOMA
     Dosage: 4 MG, QW4
     Dates: start: 20021021, end: 20050524
  2. VINCRISTINE [Concomitant]
     Indication: MULTIPLE MYELOMA
     Dates: start: 20021001, end: 20030201
  3. ADRIAMYCIN PFS [Concomitant]
     Indication: MULTIPLE MYELOMA
     Dates: start: 20021001, end: 20030201
  4. DECADRON /CAN/ [Concomitant]
     Indication: MULTIPLE MYELOMA
     Dates: start: 20021001, end: 20030201
  5. BACTRIM [Concomitant]
     Indication: PROPHYLAXIS
     Dates: start: 20030201, end: 20030501
  6. ACYCLOVIR [Concomitant]
     Indication: PROPHYLAXIS
     Dates: start: 20030201, end: 20031101
  7. DIFLUCAN [Concomitant]
     Indication: PROPHYLAXIS
     Dates: start: 20030201, end: 20031101
  8. DAPSONE [Concomitant]
     Indication: PROPHYLAXIS
     Dates: start: 20030501, end: 20030701
  9. MELPHALAN [Concomitant]
     Indication: AUTOLOGOUS BONE MARROW TRANSPLANTATION THERAPY
     Dates: start: 20030401
  10. CYTOXAN [Concomitant]
     Indication: AUTOLOGOUS BONE MARROW TRANSPLANTATION THERAPY
     Dates: start: 20030401
  11. PACLITAXEL [Concomitant]
     Indication: AUTOLOGOUS BONE MARROW TRANSPLANTATION THERAPY
     Dates: start: 20030401
  12. BCNU [Concomitant]
     Indication: AUTOLOGOUS BONE MARROW TRANSPLANTATION THERAPY
     Dates: start: 20030401
  13. ETOPOSIDE [Concomitant]
     Indication: AUTOLOGOUS BONE MARROW TRANSPLANTATION THERAPY
     Dates: start: 20030401
  14. CYTARABINE [Concomitant]
     Indication: AUTOLOGOUS BONE MARROW TRANSPLANTATION THERAPY
     Dates: start: 20030401
  15. G-CSF [Concomitant]
     Indication: AUTOLOGOUS BONE MARROW TRANSPLANTATION THERAPY
     Dates: start: 20030401
  16. EPOGEN [Concomitant]
     Indication: ANAEMIA
     Dosage: 40000 UNK, PRN
     Dates: end: 20031001

REACTIONS (1)
  - ASEPTIC NECROSIS BONE [None]
